FAERS Safety Report 6247751-4 (Version None)
Quarter: 2009Q2

REPORT INFORMATION
  Report Type: 
  Country: None (occurrence: None)
  Receive Date: 20090626
  Receipt Date: 20090623
  Transmission Date: 20091009
  Serious: Yes (Hospitalization)
  Sender: FDA-Public Use
  Company Number: CH-AMGEN-UK346818

PATIENT
  Sex: Male

DRUGS (4)
  1. ROMIPLOSTIM [Suspect]
     Indication: IDIOPATHIC THROMBOCYTOPENIC PURPURA
     Route: 058
     Dates: start: 20090511
  2. TORSEMIDE [Concomitant]
     Route: 048
     Dates: start: 20040201, end: 20090513
  3. DILATREND [Concomitant]
     Route: 048
     Dates: start: 20040701, end: 20090513
  4. SPIRICORT [Concomitant]
     Route: 048
     Dates: start: 20090511

REACTIONS (1)
  - DIARRHOEA HAEMORRHAGIC [None]
